FAERS Safety Report 4619911-7 (Version None)
Quarter: 2005Q1

REPORT INFORMATION
  Report Type: 
  Country: None (occurrence: None)
  Receive Date: 20050321
  Receipt Date: 20050321
  Transmission Date: 20050727
  Serious: Yes (Other)
  Sender: FDA-Public Use
  Company Number: None

PATIENT
  Sex: Female
  Weight: 63.5036 kg

DRUGS (1)
  1. ENBREL [Suspect]
     Indication: RHEUMATOID ARTHRITIS
     Dosage: 2(25 MG ) SELF, INJ A WEEK
     Dates: start: 20041201, end: 20050901

REACTIONS (2)
  - LABORATORY TEST ABNORMAL [None]
  - WHITE BLOOD CELL COUNT DECREASED [None]
